FAERS Safety Report 4657232-7 (Version None)
Quarter: 2005Q2

REPORT INFORMATION
  Report Type: 
  Country: None (occurrence: None)
  Receive Date: 20050506
  Receipt Date: 20050425
  Transmission Date: 20051028
  Serious: Yes (Other)
  Sender: FDA-Public Use
  Company Number: 2005059437

PATIENT
  Sex: Male

DRUGS (8)
  1. BEXTRA [Suspect]
     Indication: ARTHRITIS
     Dosage: 10 MG (10 MG, DAILY INTERVAL:  EVERYDAY),ORAL
     Route: 048
     Dates: end: 20050407
  2. ZITHROMAX [Suspect]
     Indication: INFECTION
     Dosage: (250 MG),ORAL
     Route: 048
  3. ROFECOXIB [Concomitant]
  4. PRAZOSIN HCL [Concomitant]
  5. CANDESARTAN CILEXETIL (CANDESARTAN CILEXETIL) [Concomitant]
  6. HYDROCHLOROTHIAZIDE [Concomitant]
  7. SIMVASTATIN [Concomitant]
  8. ALL OTHER THERAPEUTIC PRODUCTS (ALL OTHER THERAPEUTIC PRODUCTS) [Concomitant]

REACTIONS (6)
  - BLOOD CHOLESTEROL INCREASED [None]
  - FURUNCLE [None]
  - HAEMORRHAGE [None]
  - HYPERTENSION [None]
  - INFECTION [None]
  - SKIN DISCOLOURATION [None]
